FAERS Safety Report 8079700-0 (Version None)
Quarter: 2012Q1

REPORT INFORMATION
  Report Type: 
  Country: None (occurrence: None)
  Receive Date: 20120128
  Receipt Date: 20110718
  Transmission Date: 20120608
  Serious: No
  Sender: FDA-Public Use
  Company Number: US-ABBOTT-11P-163-0840297-00

PATIENT
  Age: 43 Year
  Sex: Female

DRUGS (5)
  1. LEXAPRO [Concomitant]
     Indication: ANXIETY
  2. LEVOXYL [Concomitant]
     Indication: HYPOTHYROIDISM
  3. HUMIRA [Suspect]
     Indication: CROHN'S DISEASE
     Dates: start: 20090901
  4. PREDNISONE TAB [Concomitant]
     Indication: CROHN'S DISEASE
  5. ASACOL [Concomitant]
     Indication: CROHN'S DISEASE

REACTIONS (1)
  - INJECTION SITE PAIN [None]
